FAERS Safety Report 9296731 (Version 1)
Quarter: 2013Q2

REPORT INFORMATION
  Report Type: Spontaneous
  Country: JP (occurrence: JP)
  Receive Date: 20130517
  Receipt Date: 20130517
  Transmission Date: 20140414
  Serious: Yes (Hospitalization)
  Sender: FDA-Public Use
  Company Number: PHHY2013JP048147

PATIENT
  Age: 19 Year
  Sex: Female

DRUGS (3)
  1. QUETIAPINE [Suspect]
     Dosage: 200 MG, PER DAY
  2. QUETIAPINE [Suspect]
     Dosage: 400 MG, PER DAY
  3. QUETIAPINE [Suspect]
     Dosage: 600 MG, PER DAY

REACTIONS (1)
  - Insulin resistance [Unknown]
